FAERS Safety Report 9328091 (Version 1)
Quarter: 2013Q2

REPORT INFORMATION
  Report Type: Report from Study
  Country: US (occurrence: US)
  Receive Date: 20130604
  Receipt Date: 20130604
  Transmission Date: 20140414
  Serious: Yes (Other)
  Sender: FDA-Public Use
  Company Number: US-GLAXOSMITHKLINE-A1025575A

PATIENT
  Age: 36 Year
  Sex: Male

DRUGS (1)
  1. BENLYSTA [Suspect]
     Indication: SYSTEMIC LUPUS ERYTHEMATOSUS
     Route: 065

REACTIONS (5)
  - Systemic lupus erythematosus [Unknown]
  - Asthenia [Unknown]
  - Fatigue [Unknown]
  - Nervous system disorder [Unknown]
  - Musculoskeletal disorder [Unknown]
